FAERS Safety Report 4906090-1 (Version None)
Quarter: 2006Q1

REPORT INFORMATION
  Report Type: 
  Country: None (occurrence: None)
  Receive Date: 20060207
  Receipt Date: 20060207
  Transmission Date: 20060701
  Serious: Yes (Hospitalization)
  Sender: FDA-Public Use
  Company Number: None

PATIENT
  Age: 82 Year
  Sex: Male
  Weight: 78 kg

DRUGS (9)
  1. NAPROXEN [Suspect]
     Indication: OSTEOARTHRITIS
     Dosage: 500 MG BID PRN
  2. OMEPRAZOLE [Concomitant]
  3. ASPIRIN [Concomitant]
  4. SIMVASTATIN [Concomitant]
  5. FLUOXETNE HCL [Concomitant]
  6. SYNTHROID [Concomitant]
  7. METOPROLOL TARTRATE [Concomitant]
  8. OMEPRAZOLE [Concomitant]
  9. ACETAMINOPHEN [Concomitant]

REACTIONS (2)
  - ABDOMINAL PAIN [None]
  - GASTROINTESTINAL HAEMORRHAGE [None]
